FAERS Safety Report 8523779-6 (Version None)
Quarter: 2012Q3

REPORT INFORMATION
  Report Type: 
  Country: None (occurrence: None)
  Receive Date: 20120720
  Receipt Date: 20120716
  Transmission Date: 20120928
  Serious: Yes (Death)
  Sender: FDA-Public Use
  Company Number: US-ASTELLAS-2011US004210

PATIENT
  Sex: Female

DRUGS (4)
  1. SERTRALINE HYDROCHLORIDE [Concomitant]
     Indication: PRODUCT USED FOR UNKNOWN INDICATION
     Dosage: 100 MG, UNKNOWN/D
     Route: 065
  2. ERLOTINIB HYDROCHLORIDE [Suspect]
     Indication: LUNG CARCINOMA CELL TYPE UNSPECIFIED STAGE 0
     Dosage: 100 MG, UID/QD
     Route: 048
     Dates: start: 20110715
  3. OXYCONTIN [Concomitant]
     Indication: PRODUCT USED FOR UNKNOWN INDICATION
     Dosage: 20 MG, UNKNOWN/D
     Route: 065
  4. ERLOTINIB HYDROCHLORIDE [Suspect]
     Indication: BRAIN NEOPLASM MALIGNANT
     Dosage: 150 MG, UID/QD
     Route: 048
     Dates: start: 20110718

REACTIONS (6)
  - NEOPLASM MALIGNANT [None]
  - OFF LABEL USE [None]
  - RASH [None]
  - CARDIAC DISORDER [None]
  - INCORRECT DOSE ADMINISTERED [None]
  - DERMATITIS ACNEIFORM [None]
